FAERS Safety Report 6029759-7 (Version None)
Quarter: 2009Q1

REPORT INFORMATION
  Report Type: 
  Country: None (occurrence: None)
  Receive Date: 20090107
  Receipt Date: 20081230
  Transmission Date: 20090719
  Serious: Yes (Hospitalization)
  Sender: FDA-Public Use
  Company Number: US-AVENTIS-200818698US

PATIENT
  Age: 83 Year
  Sex: Female

DRUGS (2)
  1. AMARYL [Suspect]
     Dosage: DOSE: UNK
     Dates: end: 20081201
  2. CORTICOSTEROIDS [Suspect]
     Indication: GOUT
     Dosage: DOSE: UNK

REACTIONS (2)
  - BLOOD GLUCOSE INCREASED [None]
  - GOUT [None]
